FAERS Safety Report 25698008 (Version 1)
Quarter: 2025Q3

REPORT INFORMATION
  Report Type: Spontaneous
  Country: TW (occurrence: TW)
  Receive Date: 20250819
  Receipt Date: 20250819
  Transmission Date: 20251020
  Serious: Yes (Other)
  Sender: BOEHRINGER INGELHEIM
  Company Number: TW-BoehringerIngelheim-2025-BI-089632

PATIENT
  Age: 71 Year
  Sex: Male
  Weight: 80.2 kg

DRUGS (15)
  1. LINAGLIPTIN [Suspect]
     Active Substance: LINAGLIPTIN
     Indication: Type 2 diabetes mellitus
     Dates: start: 20250509, end: 20250605
  2. LIPITOR [Concomitant]
     Active Substance: ATORVASTATIN CALCIUM
     Indication: Hyperlipidaemia
     Dates: start: 20250509, end: 20250605
  3. BISOPROLOL FUMARATE [Concomitant]
     Active Substance: BISOPROLOL FUMARATE
     Indication: Coronary artery disease
     Dates: start: 20250509, end: 20250605
  4. NESP Injection [Concomitant]
     Indication: Anaemia
     Dates: start: 20250417, end: 20250517
  5. DIANEAL LOW CALCIUM (2.5MEQ/L ) PERITON EAL DIALYSIS SOLUTIO N WITH 1. [Concomitant]
     Indication: End stage renal disease
     Dates: start: 20250417, end: 20250517
  6. ACTOS [Concomitant]
     Active Substance: PIOGLITAZONE HYDROCHLORIDE
     Indication: Type 2 diabetes mellitus
     Dates: start: 20250509, end: 20250605
  7. CALCIUM POLYSTYRENE SULFONATE [Concomitant]
     Active Substance: CALCIUM POLYSTYRENE SULFONATE
     Indication: Hyperkalaemia
     Dates: start: 20250417, end: 20250430
  8. BAXTER EXTRANAL PERITONEAL [Concomitant]
     Indication: End stage renal disease
     Dates: start: 20250417, end: 20250517
  9. SENNAPUR [Concomitant]
     Indication: Constipation
     Dosage: 3 TAB
     Dates: start: 20250509, end: 20250605
  10. LASIX [Concomitant]
     Active Substance: FUROSEMIDE
     Indication: Oedema
     Dates: start: 20250509, end: 20250605
  11. SODIUM FLUORIDE [Concomitant]
     Active Substance: SODIUM FLUORIDE
     Indication: Hyperphosphataemia
     Dates: start: 20250417, end: 20250517
  12. COXINE [Concomitant]
     Indication: Angina pectoris
     Dates: start: 20250509, end: 20250606
  13. BRILINTA [Concomitant]
     Active Substance: TICAGRELOR
     Indication: Coronary artery disease
     Dates: start: 20250509, end: 20250606
  14. FEBUXOSTAT [Concomitant]
     Active Substance: FEBUXOSTAT
     Indication: Hyperuricaemia
     Dates: start: 20250509, end: 20250605
  15. GLUNORMAL [Concomitant]
     Indication: Type 2 diabetes mellitus
     Dates: start: 20250509, end: 20250606

REACTIONS (1)
  - Pemphigus [Recovering/Resolving]

NARRATIVE: CASE EVENT DATE: 20250529
